FAERS Safety Report 8801373 (Version 1)
Quarter: 2012Q4

REPORT INFORMATION
  Report Type: 
  Country: BF (occurrence: BF)
  Receive Date: 20120921
  Receipt Date: 20120921
  Transmission Date: 20130627
  Serious: Yes (Other)
  Sender: FDA-Public Use
  Company Number: BF-B.I. PHARMACEUTICALS,INC./RIDGEFIELD-2012-EU-04502GD

PATIENT

DRUGS (3)
  1. NEVIRAPINE [Suspect]
     Indication: MATERNAL EXPOSURE DURING PREGNANCY
     Route: 064
  2. ZIDOVUDINE [Suspect]
     Indication: MATERNAL EXPOSURE DURING PREGNANCY
     Route: 064
  3. LAMIVUDINE [Suspect]
     Indication: MATERNAL EXPOSURE DURING PREGNANCY
     Route: 064

REACTIONS (2)
  - Foetal distress syndrome [Unknown]
  - HIV infection [Unknown]
